FAERS Safety Report 19405993 (Version 1)
Quarter: 2021Q2

REPORT INFORMATION
  Report Type: Spontaneous
  Country: FR (occurrence: FR)
  Receive Date: 20210611
  Receipt Date: 20210611
  Transmission Date: 20210717
  Serious: Yes (Hospitalization)
  Sender: FDA-Public Use
  Company Number: FR-MYLANLABS-2021M1034235

PATIENT
  Age: 54 Year
  Sex: Male
  Weight: 63 kg

DRUGS (3)
  1. VANCOMYCIN [Suspect]
     Active Substance: VANCOMYCIN
     Indication: ENTEROBACTER INFECTION
  2. VANCOMYCIN [Suspect]
     Active Substance: VANCOMYCIN
     Indication: ENTEROCOCCAL INFECTION
     Dosage: 3000 MILLIGRAM, QD 3000MG/DAY DILUTED IN 5% GLUCOSE??.
     Route: 042
  3. GLUCOSE [Concomitant]
     Active Substance: DEXTROSE
     Indication: VEHICLE SOLUTION USE

REACTIONS (6)
  - Administration site extravasation [Recovering/Resolving]
  - Product administration error [Recovering/Resolving]
  - Accidental overdose [Recovering/Resolving]
  - Calciphylaxis [Recovering/Resolving]
  - Toxicity to various agents [Recovering/Resolving]
  - Skin necrosis [Recovering/Resolving]
